FAERS Safety Report 7598076-6 (Version None)
Quarter: 2011Q3

REPORT INFORMATION
  Report Type: 
  Country: None (occurrence: None)
  Receive Date: 20110708
  Receipt Date: 20110706
  Transmission Date: 20111222
  Serious: Yes (Hospitalization)
  Sender: FDA-Public Use
  Company Number: US-ALLERGAN-1109127US

PATIENT
  Age: 5 Year
  Sex: Male

DRUGS (1)
  1. BOTULINUM TOXIN TYPE A [Suspect]
     Indication: PRODUCT USED FOR UNKNOWN INDICATION
     Dosage: UNK
     Dates: start: 20110628, end: 20110628

REACTIONS (1)
  - ADVERSE EVENT [None]
